FAERS Safety Report 12453270 (Version 1)
Quarter: 2016Q2

REPORT INFORMATION
  Report Type: Report from Study
  Country: DE (occurrence: DE)
  Receive Date: 20160609
  Receipt Date: 20160609
  Transmission Date: 20160815
  Serious: Yes (Death, Hospitalization, Other)
  Sender: FDA-Public Use
  Company Number: DE-BAXALTA-2014BAX064096

PATIENT
  Age: 33 Year
  Sex: Male

DRUGS (18)
  1. HEMOFIL [Suspect]
     Active Substance: ANTIHEMOPHILIC FACTOR HUMAN
     Indication: FACTOR VIII DEFICIENCY
     Dosage: UNK
     Route: 042
     Dates: start: 19790220
  2. FEIBA NF [Suspect]
     Active Substance: ANTI-INHIBITOR COAGULANT COMPLEX
     Dosage: 4000 IU, 3X A DAY
     Route: 042
     Dates: start: 19790705
  3. FEIBA NF [Suspect]
     Active Substance: ANTI-INHIBITOR COAGULANT COMPLEX
     Dosage: 2000-8000 IU 5X A DAY
     Route: 042
     Dates: start: 19790706
  4. HEPARIN [Suspect]
     Active Substance: HEPARIN SODIUM
     Indication: THROMBOSIS PROPHYLAXIS
     Dosage: 250-8000 IU DAILY
     Route: 042
     Dates: start: 19790624, end: 19790627
  5. SOLU-DECORTIN [Concomitant]
     Active Substance: PREDNISOLONE SODIUM SUCCINATE
     Indication: PROPHYLAXIS
     Dosage: 250 MG, UNK
     Route: 042
     Dates: start: 19790704, end: 19790704
  6. UGUROL [Suspect]
     Active Substance: TRANEXAMIC ACID
     Indication: MELAENA
     Dosage: 1 VIAL EVERY 4 HOURS
     Route: 042
     Dates: start: 19790623, end: 19790627
  7. FEIBA NF [Suspect]
     Active Substance: ANTI-INHIBITOR COAGULANT COMPLEX
     Dosage: 6000-8000 IU 3X A DAY
     Route: 042
     Dates: start: 19790707
  8. AUTOPLEX [Suspect]
     Active Substance: ANTI-INHIBITOR COAGULANT COMPLEX
     Indication: MELAENA
     Dosage: 3102 IU, 2X A DAY
     Route: 042
     Dates: start: 19790621, end: 19790707
  9. TRASYLOL [Suspect]
     Active Substance: APROTININ
     Indication: MELAENA
     Dosage: 500000-120000 KIU, EVERY 4 HOURS
     Dates: start: 19790622, end: 19790708
  10. HEMOFIL [Suspect]
     Active Substance: ANTIHEMOPHILIC FACTOR HUMAN
     Indication: IMMUNE TOLERANCE INDUCTION
     Dosage: 6000-25000 IU 3X A DAY
     Route: 042
     Dates: start: 19790625, end: 19790708
  11. FEIBA NF [Suspect]
     Active Substance: ANTI-INHIBITOR COAGULANT COMPLEX
     Dosage: UNK
     Route: 042
     Dates: start: 19790617, end: 19790621
  12. UGUROL [Suspect]
     Active Substance: TRANEXAMIC ACID
     Indication: HAEMATEMESIS
     Dosage: 1 VIAL EVERY 4 HOURS
     Route: 042
     Dates: start: 19790629
  13. FEIBA NF [Suspect]
     Active Substance: ANTI-INHIBITOR COAGULANT COMPLEX
     Dosage: 2000-7000 2X A DAY
     Route: 042
     Dates: start: 19790708
  14. AUTOPLEX [Suspect]
     Active Substance: ANTI-INHIBITOR COAGULANT COMPLEX
     Indication: HAEMATEMESIS
  15. FEIBA NF [Suspect]
     Active Substance: ANTI-INHIBITOR COAGULANT COMPLEX
     Indication: FACTOR VIII DEFICIENCY
     Dosage: 4000 IU, 2X A DAY
     Route: 042
     Dates: start: 19790704
  16. TRASYLOL [Suspect]
     Active Substance: APROTININ
     Indication: HAEMATEMESIS
  17. HEPARIN [Suspect]
     Active Substance: HEPARIN SODIUM
     Dosage: 250-8000 IU DAILY
     Dates: start: 19790629
  18. PYRAMIDON [Concomitant]
     Indication: HEADACHE
     Dosage: UNK
     Route: 042
     Dates: start: 19790627, end: 19790627

REACTIONS (12)
  - Pulmonary haemorrhage [Unknown]
  - Lung infiltration [Unknown]
  - Renal failure [Unknown]
  - Headache [Unknown]
  - Epistaxis [Unknown]
  - Visual impairment [Unknown]
  - Haematemesis [Unknown]
  - Intraventricular haemorrhage [Fatal]
  - Respiratory disorder [Unknown]
  - Pharyngeal haemorrhage [Unknown]
  - Cerebral haemorrhage [Fatal]
  - Melaena [Unknown]

NARRATIVE: CASE EVENT DATE: 19790626
